FAERS Safety Report 7518091-8 (Version None)
Quarter: 2011Q2

REPORT INFORMATION
  Report Type: 
  Country: None (occurrence: None)
  Receive Date: 20110602
  Receipt Date: 20110527
  Transmission Date: 20111010
  Serious: Yes (Death, Other)
  Sender: FDA-Public Use
  Company Number: US-AMGEN-USASP2010006898

PATIENT
  Age: 69 Year
  Sex: Female

DRUGS (7)
  1. ACETAMINOPHEN [Concomitant]
  2. LEVOTHYROXINE SODIUM [Concomitant]
     Dosage: 88 A?G, QD
  3. MULTI-VITAMINS [Concomitant]
  4. BONIVA [Concomitant]
  5. IMURAN [Concomitant]
     Indication: RHEUMATOID ARTHRITIS
     Dosage: UNK
     Dates: start: 20100501
  6. NPLATE [Suspect]
     Indication: IDIOPATHIC THROMBOCYTOPENIC PURPURA
     Dosage: 572.67 A?G, UNK
     Dates: start: 20100112, end: 20100601
  7. ACETAMINOPHEN AND HYDROCODONE BITARTRATE [Concomitant]

REACTIONS (7)
  - THERAPEUTIC RESPONSE DECREASED [None]
  - CHOLECYSTECTOMY [None]
  - DEATH [None]
  - THROMBOCYTOPENIA [None]
  - FATIGUE [None]
  - JAUNDICE [None]
  - ARTHRALGIA [None]
